FAERS Safety Report 8100362-8 (Version None)
Quarter: 2012Q1

REPORT INFORMATION
  Report Type: 
  Country: None (occurrence: None)
  Receive Date: 20120129
  Receipt Date: 20111122
  Transmission Date: 20120608
  Serious: No
  Sender: FDA-Public Use
  Company Number: US-ABBOTT-11P-163-0878001-00

PATIENT
  Age: 31 Year
  Sex: Male

DRUGS (6)
  1. AMBIEN [Concomitant]
     Indication: INSOMNIA
     Dosage: AT NIGHT
  2. HUMIRA [Suspect]
  3. GABAPENTIN [Concomitant]
     Indication: NEURALGIA
  4. DICLOFENAC SODIUM [Concomitant]
     Indication: PAIN
     Dosage: AS NEEDED TID
  5. FLEXERIL [Concomitant]
     Indication: MUSCLE SPASMS
     Dosage: AS NEEDED BID
  6. HUMIRA [Suspect]
     Indication: ANKYLOSING SPONDYLITIS
     Dates: start: 20110817

REACTIONS (5)
  - DRUG EFFECT DECREASED [None]
  - PAIN [None]
  - BLOOD CALCITONIN INCREASED [None]
  - INJECTION SITE ERYTHEMA [None]
  - VITAMIN D DECREASED [None]
